FAERS Safety Report 6106034-3 (Version None)
Quarter: 2009Q1

REPORT INFORMATION
  Report Type: 
  Country: None (occurrence: None)
  Receive Date: 20090306
  Receipt Date: 20090225
  Transmission Date: 20090719
  Serious: Yes (Other)
  Sender: FDA-Public Use
  Company Number: GR-ROCHE-591401

PATIENT
  Age: 72 Year
  Sex: Male

DRUGS (2)
  1. MIRCERA [Suspect]
     Route: 065
  2. ARANESP [Concomitant]
     Dosage: DOSE: 60 X 3
     Route: 042

REACTIONS (4)
  - HAEMATOCRIT DECREASED [None]
  - PLATELET COUNT DECREASED [None]
  - RED BLOOD CELL COUNT DECREASED [None]
  - WHITE BLOOD CELL COUNT DECREASED [None]
